FAERS Safety Report 8216297-6 (Version None)
Quarter: 2012Q1

REPORT INFORMATION
  Report Type: 
  Country: None (occurrence: None)
  Receive Date: 20120316
  Receipt Date: 20120309
  Transmission Date: 20120608
  Serious: Yes (Hospitalization)
  Sender: FDA-Public Use
  Company Number: PHFR2012GB001496

PATIENT
  Sex: Male

DRUGS (8)
  1. CLOZARIL [Suspect]
     Dosage: 50 MG, BID
     Route: 048
  2. CLOZARIL [Suspect]
     Indication: SCHIZOPHRENIA
     Dosage: 250 MG, DAILY
     Route: 048
     Dates: start: 19950510
  3. PAROXETINE HCL [Concomitant]
     Dosage: 20 MG, DAILY
     Route: 048
  4. DOMPERIDONE [Concomitant]
  5. SELECTIVE SEROTONIN REUPTAKE INHIBITORS [Concomitant]
  6. CLOZARIL [Suspect]
     Dosage: 250 MG, UNK
     Route: 048
  7. OMEPRAZOLE [Concomitant]
     Dosage: 20 MG, DAILY
     Route: 048
  8. FOLIC ACID [Concomitant]

REACTIONS (3)
  - ANTIPSYCHOTIC DRUG LEVEL INCREASED [None]
  - ALCOHOL POISONING [None]
  - MALAISE [None]
